FAERS Safety Report 17824280 (Version 1)
Quarter: 2020Q2

REPORT INFORMATION
  Report Type: Spontaneous
  Country: US (occurrence: US)
  Receive Date: 20200526
  Receipt Date: 20200526
  Transmission Date: 20200714
  Serious: Yes (Hospitalization)
  Sender: FDA-Public Use
  Company Number: US-VERTEX PHARMACEUTICALS-2020-011543

PATIENT
  Age: 22 Year
  Sex: Female
  Weight: 54 kg

DRUGS (16)
  1. PROPRANOLOL HCL [Concomitant]
     Active Substance: PROPRANOLOL HYDROCHLORIDE
  2. LACTASE [Concomitant]
     Active Substance: LACTASE
  3. VITAMIN D [COLECALCIFEROL] [Concomitant]
     Active Substance: CHOLECALCIFEROL
  4. CREON [Concomitant]
     Active Substance: PANCRELIPASE AMYLASE\PANCRELIPASE LIPASE\PANCRELIPASE PROTEASE
  5. VITAMIN A [RETINOL] [Concomitant]
     Active Substance: RETINOL
  6. URSODIOL. [Concomitant]
     Active Substance: URSODIOL
  7. MEPHYTON [Concomitant]
     Active Substance: PHYTONADIONE
  8. IRON [Concomitant]
     Active Substance: IRON
  9. VENTOLIN HFA [Concomitant]
     Active Substance: ALBUTEROL SULFATE
  10. SODIUM CHLORIDE. [Concomitant]
     Active Substance: SODIUM CHLORIDE
  11. BASAGLAR [Concomitant]
     Active Substance: INSULIN GLARGINE
  12. ADMELOG [Concomitant]
     Active Substance: INSULIN LISPRO
  13. TRIKAFTA [Suspect]
     Active Substance: ELEXACAFTOR\IVACAFTOR\TEZACAFTOR
     Indication: CYSTIC FIBROSIS
     Dosage: 2 TABLETS (100 MG ELEXACAFTOR/ 50 MG TEZACAFTOR/ 75 MG IVACAFTOR) AM, 1 TABLET (150MG IVACAFTOR) PM
     Route: 048
     Dates: start: 20200511
  14. PULMOZYME [Concomitant]
     Active Substance: DORNASE ALFA
  15. PREVACID [Concomitant]
     Active Substance: LANSOPRAZOLE
  16. TOBI [Concomitant]
     Active Substance: TOBRAMYCIN

REACTIONS (1)
  - Infection [Unknown]

NARRATIVE: CASE EVENT DATE: 202005
